FAERS Safety Report 17621220 (Version 1)
Quarter: 2020Q2

REPORT INFORMATION
  Report Type: Spontaneous
  Country: US (occurrence: US)
  Receive Date: 20200402
  Receipt Date: 20200402
  Transmission Date: 20200713
  Serious: Yes (Other)
  Sender: FDA-Public Use
  Company Number: None

PATIENT
  Age: 61 Year
  Sex: Female
  Weight: 58.5 kg

DRUGS (7)
  1. HYLASTIN [Concomitant]
  2. HYALURONIC ACID [Concomitant]
     Active Substance: HYALURONIC ACID
  3. TURMERIC CURCUMIN COMPLEX [Concomitant]
     Active Substance: HERBALS\TURMERIC
  4. OMEGA-3 SUPER FORMULA [Concomitant]
  5. GINKGO BILOBA [Concomitant]
     Active Substance: GINKGO
  6. DORZOLAMIDE HYDROCHLORIDE+TIMOLOL MALEATE OPHTHALMIC SOLUTION, USP [Suspect]
     Active Substance: DORZOLAMIDE HYDROCHLORIDE\TIMOLOL MALEATE
     Indication: GLAUCOMA
     Dosage: ?          QUANTITY:1 DROP(S);?
     Route: 047
     Dates: start: 20190101, end: 20200312
  7. VITAMIN D [Concomitant]
     Active Substance: VITAMIN D NOS

REACTIONS (2)
  - Eye swelling [None]
  - Eye pruritus [None]

NARRATIVE: CASE EVENT DATE: 20200401
